FAERS Safety Report 4615879-8 (Version None)
Quarter: 2005Q1

REPORT INFORMATION
  Report Type: 
  Country: None (occurrence: None)
  Receive Date: 20050321
  Receipt Date: 20050310
  Transmission Date: 20050727
  Serious: Yes (Life-Threatening, Other)
  Sender: FDA-Public Use
  Company Number: GXKR2005ES00743

PATIENT
  Sex: Female

DRUGS (2)
  1. METFORMIN (NGX)(METFORMIN) UNKNOWN [Suspect]
     Indication: DIABETES MELLITUS
  2. ACE INHIBITOR NOS (NO INGREDIENTS/SUBSTANCES) [Suspect]
     Indication: HYPERTENSION

REACTIONS (7)
  - HAEMODIALYSIS [None]
  - HYPERKALAEMIA [None]
  - HYPOPERFUSION [None]
  - HYPOTENSION [None]
  - LACTIC ACIDOSIS [None]
  - RENAL DISORDER [None]
  - RENAL FAILURE ACUTE [None]
